FAERS Safety Report 9907679 (Version 2)
Quarter: 2014Q1

REPORT INFORMATION
  Report Type: Spontaneous
  Country: US (occurrence: US)
  Receive Date: 20140219
  Receipt Date: 20140221
  Transmission Date: 20141002
  Serious: No
  Sender: FDA-Public Use
  Company Number: US-BIOGENIDEC-2014BI014707

PATIENT
  Sex: Female

DRUGS (1)
  1. TYSABRI [Suspect]
     Indication: MULTIPLE SCLEROSIS
     Route: 042
     Dates: start: 20110823

REACTIONS (10)
  - Hypoaesthesia [Unknown]
  - Hypoaesthesia oral [Recovered/Resolved]
  - Gait disturbance [Not Recovered/Not Resolved]
  - Paraesthesia oral [Not Recovered/Not Resolved]
  - General symptom [Not Recovered/Not Resolved]
  - General physical health deterioration [Unknown]
  - Hypoglycaemia [Not Recovered/Not Resolved]
  - Temporomandibular joint syndrome [Unknown]
  - Asthenia [Unknown]
  - Headache [Recovered/Resolved]
